FAERS Safety Report 20689190 (Version 1)
Quarter: 2022Q2

REPORT INFORMATION
  Report Type: Spontaneous
  Country: US (occurrence: None)
  Receive Date: 20220407
  Receipt Date: 20220407
  Transmission Date: 20220721
  Serious: Yes (Life-Threatening)
  Sender: FDA-Public Use
  Company Number: None

PATIENT
  Age: 44 Year
  Sex: Female
  Weight: 55.9 kg

DRUGS (6)
  1. SACITUZUMAB GOVITECAN [Suspect]
     Active Substance: SACITUZUMAB GOVITECAN
     Indication: Triple negative breast cancer
     Route: 042
     Dates: start: 20220303, end: 20220406
  2. ondansetron 16 mg ODT [Concomitant]
  3. acetaminophen 650 mg tab [Concomitant]
  4. famotidine 20 mg tab [Concomitant]
  5. dexamethasone 12 mg tab [Concomitant]
  6. diphenhydramine 25 mg tab [Concomitant]

REACTIONS (1)
  - Angioedema [None]

NARRATIVE: CASE EVENT DATE: 20220406
